FAERS Safety Report 19281015 (Version 1)
Quarter: 2021Q2

REPORT INFORMATION
  Report Type: Spontaneous
  Country: US (occurrence: US)
  Receive Date: 20210520
  Receipt Date: 20210520
  Transmission Date: 20210717
  Serious: Yes (Death, Other)
  Sender: FDA-Public Use
  Company Number: US-GLAXOSMITHKLINE-US2021GSK106275

PATIENT
  Sex: Male

DRUGS (5)
  1. ZANTAC [Suspect]
     Active Substance: RANITIDINE HYDROCHLORIDE
     Dosage: UNKNOWN AT THIS TIME PRESCRIPTION
     Route: 065
  2. RANITIDINE HYDROCHLORIDE. [Suspect]
     Active Substance: RANITIDINE HYDROCHLORIDE
     Dosage: UNK UNK, U
     Route: 065
     Dates: start: 199601, end: 201901
  3. ZANTAC [Suspect]
     Active Substance: RANITIDINE HYDROCHLORIDE
     Dosage: UNKNOWN AT THIS TIME PRESCRIPTION
     Route: 065
  4. RANITIDINE. [Suspect]
     Active Substance: RANITIDINE
     Dosage: UNK, U
     Route: 065
     Dates: start: 199601, end: 201901
  5. RANITIDINE. [Suspect]
     Active Substance: RANITIDINE
     Dosage: UNK, U
     Route: 065
     Dates: start: 199601, end: 201901

REACTIONS (1)
  - Gastric cancer [Fatal]
